FAERS Safety Report 6358066-8 (Version None)
Quarter: 2009Q3

REPORT INFORMATION
  Report Type: 
  Country: None (occurrence: None)
  Receive Date: 20090916
  Receipt Date: 20090910
  Transmission Date: 20100115
  Serious: Yes (Other)
  Sender: FDA-Public Use
  Company Number: A0807438A

PATIENT
  Age: 4 Month
  Sex: Male
  Weight: 9 kg

DRUGS (2)
  1. AEROLIN [Suspect]
     Indication: ASTHMATIC CRISIS
     Dosage: 1PUFF AS REQUIRED
     Route: 055
     Dates: start: 20090902, end: 20090902
  2. TAMIFLU [Concomitant]
     Dates: start: 20090901, end: 20090905

REACTIONS (4)
  - CYANOSIS [None]
  - HYPERHIDROSIS [None]
  - PALLOR [None]
  - TACHYCARDIA [None]
